FAERS Safety Report 7303041-X (Version None)
Quarter: 2011Q1

REPORT INFORMATION
  Report Type: 
  Country: None (occurrence: None)
  Receive Date: 20110221
  Receipt Date: 20110209
  Transmission Date: 20110831
  Serious: Yes (Other)
  Sender: FDA-Public Use
  Company Number: US-BIOGENIDEC-2009BI034693

PATIENT
  Age: 54 Year
  Sex: Female
  Weight: 58 kg

DRUGS (4)
  1. AVONEX [Suspect]
     Indication: MULTIPLE SCLEROSIS
     Route: 030
     Dates: start: 20091110
  2. AVONEX [Suspect]
     Route: 030
     Dates: start: 19980101, end: 20030101
  3. AVONEX [Suspect]
     Route: 030
     Dates: start: 20030101, end: 20090901
  4. DEPAKOTE [Concomitant]
     Indication: CONVULSION
     Route: 048

REACTIONS (7)
  - MEMORY IMPAIRMENT [None]
  - CONVULSION [None]
  - EXCORIATION [None]
  - HYPERTENSION [None]
  - VISUAL IMPAIRMENT [None]
  - MEDICATION ERROR [None]
  - URINARY TRACT INFECTION [None]
